FAERS Safety Report 7766783-8 (Version None)
Quarter: 2011Q3

REPORT INFORMATION
  Report Type: 
  Country: None (occurrence: None)
  Receive Date: 20110922
  Receipt Date: 20100809
  Transmission Date: 20111222
  Serious: No
  Sender: FDA-Public Use
  Company Number: US-ASTRAZENECA-2005UW09974

PATIENT
  Sex: Male

DRUGS (2)
  1. SEROQUEL [Suspect]
     Indication: AFFECTIVE DISORDER
     Route: 048
  2. ZOLOFT [Concomitant]

REACTIONS (7)
  - WEIGHT INCREASED [None]
  - BLOOD CHOLESTEROL INCREASED [None]
  - SOMNOLENCE [None]
  - AMNESIA [None]
  - GLUCOSE TOLERANCE IMPAIRED [None]
  - COGNITIVE DISORDER [None]
  - DRUG DEPENDENCE [None]
